FAERS Safety Report 21372197 (Version 1)
Quarter: 2022Q3

REPORT INFORMATION
  Report Type: Spontaneous
  Country: DE (occurrence: DE)
  Receive Date: 20220924
  Receipt Date: 20220924
  Transmission Date: 20221027
  Serious: Yes (Hospitalization, Other)
  Sender: FDA-Public Use
  Company Number: DE-ADRED-08078-01

PATIENT
  Age: 45 Year
  Sex: Female
  Weight: 75 kg

DRUGS (4)
  1. DENOSUMAB [Suspect]
     Active Substance: DENOSUMAB
     Indication: Product used for unknown indication
     Dosage: 120 MG, SCHEME
     Route: 058
  2. ERIBULIN [Suspect]
     Active Substance: ERIBULIN
     Indication: Product used for unknown indication
     Dosage: SCHEME
     Route: 065
  3. AMOXICILLIN\CLAVULANIC ACID [Concomitant]
     Active Substance: AMOXICILLIN\CLAVULANIC ACID
     Dosage: NK
     Route: 048
  4. MOXIFLOXACIN [Concomitant]
     Active Substance: MOXIFLOXACIN
     Dosage: NK
     Route: 048

REACTIONS (3)
  - Cough [Unknown]
  - Dyspnoea [Unknown]
  - Pneumonia [Unknown]
